FAERS Safety Report 9104384 (Version 2)
Quarter: 2016Q4

REPORT INFORMATION
  Report Type: Spontaneous
  Country: FR (occurrence: FR)
  Receive Date: 20130220
  Receipt Date: 20161215
  Transmission Date: 20170207
  Serious: Yes (Hospitalization)
  Sender: FDA-Public Use
  Company Number: PHHY2013FR016325

PATIENT
  Age: 47 Year
  Sex: Female

DRUGS (4)
  1. AMOXICILLIN+CLAVULANATE SANDOZ [Suspect]
     Active Substance: AMOXICILLIN\CLAVULANATE POTASSIUM
     Indication: ANTIBIOTIC PROPHYLAXIS
     Route: 042
     Dates: start: 20120919
  2. LIDOCAINE. [Concomitant]
     Active Substance: LIDOCAINE
     Indication: INDUCTION OF ANAESTHESIA
     Dosage: 20 MG, UNK
     Route: 042
     Dates: start: 20120919
  3. PROPOFOL. [Concomitant]
     Active Substance: PROPOFOL
     Indication: INDUCTION OF ANAESTHESIA
     Dosage: 150 MG, UNK
     Route: 042
     Dates: start: 20120919
  4. ATRACURIUM [Concomitant]
     Active Substance: ATRACURIUM
     Indication: INDUCTION OF ANAESTHESIA
     Dosage: 50 MG, UNK
     Route: 042
     Dates: start: 20120919

REACTIONS (4)
  - Acute kidney injury [Recovered/Resolved]
  - Crystal urine [Recovered/Resolved]
  - Oliguria [Recovered/Resolved]
  - Haematuria [Recovered/Resolved]

NARRATIVE: CASE EVENT DATE: 20120919
